FAERS Safety Report 6497073-1 (Version None)
Quarter: 2009Q4

REPORT INFORMATION
  Report Type: 
  Country: None (occurrence: None)
  Receive Date: 20091215
  Receipt Date: 20090223
  Transmission Date: 20100525
  Serious: No
  Sender: FDA-Public Use
  Company Number: A0770011A

PATIENT
  Age: 65 Year
  Sex: Male

DRUGS (6)
  1. AVODART [Suspect]
     Indication: BENIGN PROSTATIC HYPERPLASIA
     Dosage: .5MG VARIABLE DOSE
     Route: 048
     Dates: start: 20080301
  2. LOVAZA [Suspect]
     Indication: BLOOD CHOLESTEROL INCREASED
     Dosage: 1G TWICE PER DAY
     Route: 048
     Dates: start: 20070801
  3. CRESTOR [Concomitant]
  4. ALTACE [Concomitant]
  5. BABY ASPIRIN [Concomitant]
  6. VITAMIN D [Concomitant]

REACTIONS (3)
  - DYSPHONIA [None]
  - LOW DENSITY LIPOPROTEIN INCREASED [None]
  - MUSCLE STRAIN [None]
